FAERS Safety Report 4834156-3 (Version None)
Quarter: 2005Q4

REPORT INFORMATION
  Report Type: 
  Country: None (occurrence: None)
  Receive Date: 20051122
  Receipt Date: 20051115
  Transmission Date: 20060501
  Serious: Yes (Other)
  Sender: FDA-Public Use
  Company Number: US-GLAXOSMITHKLINE-A0582281A

PATIENT
  Age: 49 Year
  Sex: Female

DRUGS (2)
  1. COMMIT [Suspect]
     Indication: SMOKING CESSATION THERAPY
     Dosage: 2MG SEE DOSAGE TEXT
     Route: 002
  2. NICORETTE (MINT) [Suspect]
     Indication: SMOKING CESSATION THERAPY
     Route: 002

REACTIONS (11)
  - ANXIETY [None]
  - DRUG ABUSER [None]
  - HEADACHE [None]
  - INSOMNIA [None]
  - INTENTIONAL DRUG MISUSE [None]
  - NERVOUSNESS [None]
  - PITUITARY TUMOUR [None]
  - PSYCHOMOTOR HYPERACTIVITY [None]
  - RESTLESSNESS [None]
  - STOMATITIS [None]
  - VISUAL DISTURBANCE [None]
